FAERS Safety Report 4900284-7 (Version None)
Quarter: 2006Q1

REPORT INFORMATION
  Report Type: 
  Country: None (occurrence: None)
  Receive Date: 20060203
  Receipt Date: 20060123
  Transmission Date: 20060701
  Serious: Yes (Other)
  Sender: FDA-Public Use
  Company Number: AU-ROCHE-433493

PATIENT
  Age: 46 Year
  Sex: Male

DRUGS (5)
  1. INTERFERON ALFA-2A [Suspect]
     Route: 065
     Dates: start: 19900215
  2. HYDROXYUREA [Concomitant]
     Route: 048
  3. METOCLOPRAMIDE HCL [Concomitant]
     Dosage: REPORTED AS METOCLOPRAMIDE HYDROCHLORIDE.
  4. ALLOPURINOL [Concomitant]
     Route: 048
  5. LOMOTIL [Concomitant]
     Route: 048

REACTIONS (12)
  - COUGH [None]
  - DIARRHOEA [None]
  - DYSPNOEA [None]
  - HAEMOLYTIC URAEMIC SYNDROME [None]
  - HYPERTENSION [None]
  - NAUSEA [None]
  - PROTEINURIA [None]
  - PULMONARY OEDEMA [None]
  - PYREXIA [None]
  - RENAL FAILURE [None]
  - TACHYCARDIA [None]
  - VOMITING [None]
